FAERS Safety Report 17274922 (Version 1)
Quarter: 2020Q1

REPORT INFORMATION
  Report Type: Report from Study
  Country: None (occurrence: IT)
  Receive Date: 20200116
  Receipt Date: 20200116
  Transmission Date: 20200409
  Serious: Yes (Hospitalization)
  Sender: FDA-Public Use
  Company Number: IT-ABBVIE-20K-083-3227303-00

PATIENT
  Age: 83 Year
  Sex: Female

DRUGS (1)
  1. DUODOPA [Suspect]
     Active Substance: CARBIDOPA\LEVODOPA
     Indication: PARKINSON^S DISEASE
     Dosage: MD 10+3??CR 3,5??ED 3,1
     Route: 050
     Dates: start: 20180619, end: 20191111

REACTIONS (2)
  - General physical health deterioration [Unknown]
  - Complication associated with device [Unknown]

NARRATIVE: CASE EVENT DATE: 202001
